FAERS Safety Report 13993102 (Version 1)
Quarter: 2017Q3

REPORT INFORMATION
  Report Type: Report from Study
  Country: CO (occurrence: CO)
  Receive Date: 20170920
  Receipt Date: 20170920
  Transmission Date: 20171128
  Serious: Yes (Other)
  Sender: FDA-Public Use
  Company Number: CO-BAYER-2016-124865

PATIENT
  Age: 56 Year
  Sex: Female

DRUGS (10)
  1. ADEMPAS [Suspect]
     Active Substance: RIOCIGUAT
     Indication: PULMONARY ARTERIAL HYPERTENSION
     Dosage: 0.5 MG, BID
     Dates: start: 20161007
  2. CLONIDINE. [Concomitant]
     Active Substance: CLONIDINE
     Dosage: 0.150 MG, QD
  3. DAFLON [DIOSMIN] [Concomitant]
     Dosage: 500 MG, QD
     Route: 048
  4. ADEMPAS [Suspect]
     Active Substance: RIOCIGUAT
     Indication: PULMONARY ARTERIAL HYPERTENSION
     Dosage: 2 DF, BID
     Route: 048
     Dates: end: 20170222
  5. ADEMPAS [Suspect]
     Active Substance: RIOCIGUAT
     Indication: PULMONARY ARTERIAL HYPERTENSION
     Dosage: 1 MG, BID
     Route: 048
     Dates: start: 20170223
  6. LOSARTAN. [Concomitant]
     Active Substance: LOSARTAN
     Dosage: 50 MG, BID
     Route: 048
  7. ADEMPAS [Suspect]
     Active Substance: RIOCIGUAT
     Indication: PULMONARY ARTERIAL HYPERTENSION
     Dosage: 1 MG, BID
  8. AMLODIPINE [Concomitant]
     Active Substance: AMLODIPINE BESYLATE
     Dosage: 5 MG, BID
     Route: 048
  9. ADEMPAS [Suspect]
     Active Substance: RIOCIGUAT
     Indication: PULMONARY ARTERIAL HYPERTENSION
     Dosage: 1 MG, BID
     Route: 048
     Dates: start: 20160517
  10. LEVOTHYROXINE. [Concomitant]
     Active Substance: LEVOTHYROXINE
     Dosage: 50 MG, QD
     Route: 048

REACTIONS (12)
  - Hypotension [Recovered/Resolved]
  - Inappropriate prescribing [Recovered/Resolved]
  - Asthma [Recovering/Resolving]
  - Off label use [Recovered/Resolved]
  - Headache [Recovered/Resolved]
  - Blindness transient [Recovering/Resolving]
  - Vision blurred [Recovered/Resolved]
  - Off label use [Not Recovered/Not Resolved]
  - Vision blurred [Recovering/Resolving]
  - Blindness transient [Recovered/Resolved]
  - Underdose [Recovered/Resolved]
  - Headache [Not Recovered/Not Resolved]

NARRATIVE: CASE EVENT DATE: 2016
